FAERS Safety Report 22714956 (Version 2)
Quarter: 2024Q3

REPORT INFORMATION
  Report Type: Spontaneous
  Country: FR (occurrence: FR)
  Receive Date: 20230718
  Receipt Date: 20240723
  Transmission Date: 20241016
  Serious: No
  Sender: ALKEM
  Company Number: FR-ALKEM LABORATORIES LIMITED-FR-ALKEM-2022-15424

PATIENT
  Age: 40 Year
  Sex: Male

DRUGS (5)
  1. DRONABINOL [Suspect]
     Active Substance: DRONABINOL
     Indication: Neuralgia
     Dosage: 10 MILLIGRAM, OD (1 INTAKE OF 4 CAPSULES IN THE EVENING) (CAPSULE MOLLE, SOFT CAPSULE)
     Route: 065
  2. DRONABINOL [Suspect]
     Active Substance: DRONABINOL
     Indication: Central pain syndrome
     Dosage: 10 MILLIGRAM, OD (1 INTAKE IN THE MORNING) (CAPSULE MOLLE, SOFT CAPSULE) DAILY, MARINOL
     Route: 065
     Dates: end: 20230108
  3. DRONABINOL [Suspect]
     Active Substance: DRONABINOL
     Indication: Multiple sclerosis
     Dosage: 10 MILLIGRAM, QD (4 DAILY) DRONABINOL
     Route: 048
     Dates: start: 20230109, end: 20230120
  4. DRONABINOL [Suspect]
     Active Substance: DRONABINOL
     Dosage: 10 MILLIGRAM, QD (IN 1 INTAKE) (RESTARTED) (EFFECTIVE DOSE) ((CAPSULE MOLLE, SOFT CAPSULE) (DAILY) M
     Route: 065
     Dates: start: 20230306
  5. ZOLPIDEM [Concomitant]
     Active Substance: ZOLPIDEM TARTRATE
     Indication: Sleep disorder
     Dosage: UNK (15)
     Route: 065

REACTIONS (4)
  - Sleep disorder [Recovered/Resolved]
  - Insomnia [Recovered/Resolved]
  - Off label use [Unknown]
  - Product prescribing issue [Unknown]

NARRATIVE: CASE EVENT DATE: 20230109
